FAERS Safety Report 18765517 (Version 1)
Quarter: 2021Q1

REPORT INFORMATION
  Report Type: Spontaneous
  Country: BR (occurrence: BR)
  Receive Date: 20210121
  Receipt Date: 20210121
  Transmission Date: 20210419
  Serious: Yes (Other)
  Sender: FDA-Public Use
  Company Number: BR-ROCHE-2752145

PATIENT
  Sex: Male

DRUGS (3)
  1. DIAMOX SEQUELS [Concomitant]
     Active Substance: ACETAZOLAMIDE
  2. RIVOTRIL [Suspect]
     Active Substance: CLONAZEPAM
     Indication: INSOMNIA
     Dosage: 1 TABLET IN THE MORNING AND 2 TABLETS AT NIGHT
     Route: 060
  3. RIVOTRIL [Suspect]
     Active Substance: CLONAZEPAM
     Indication: ANXIETY
     Dosage: 1 TABLET PER DAY
     Route: 060

REACTIONS (7)
  - Glaucoma [Not Recovered/Not Resolved]
  - Renal disorder [Not Recovered/Not Resolved]
  - Cataract [Not Recovered/Not Resolved]
  - Arrhythmia [Not Recovered/Not Resolved]
  - Intraocular pressure increased [Not Recovered/Not Resolved]
  - Off label use [Unknown]
  - Intentional product use issue [Unknown]
